FAERS Safety Report 9112729 (Version 3)
Quarter: 2013Q1

REPORT INFORMATION
  Report Type: Spontaneous
  Country: US (occurrence: US)
  Receive Date: 20130211
  Receipt Date: 20130318
  Transmission Date: 20140127
  Serious: Yes (Death, Other)
  Sender: FDA-Public Use
  Company Number: US-ELI_LILLY_AND_COMPANY-US201302001507

PATIENT
  Sex: Male

DRUGS (8)
  1. GEMZAR [Suspect]
     Indication: PANCREATIC CARCINOMA
     Dosage: 1640 MG, UNKNOWN
     Route: 065
     Dates: start: 20120207
  2. GEMZAR [Suspect]
     Dosage: 1800 MG, UNKNOWN
     Route: 042
     Dates: start: 20120214
  3. GEMZAR [Suspect]
     Dosage: 1800 MG, UNKNOWN
     Route: 042
     Dates: start: 20120221
  4. GEMZAR [Suspect]
     Dosage: 1800 MG, UNKNOWN
     Route: 042
     Dates: start: 20120306
  5. GEMZAR [Suspect]
     Dosage: 1800 MG, UNKNOWN
     Route: 042
     Dates: start: 20120313
  6. GEMZAR [Suspect]
     Dosage: 1800 MG, UNKNOWN
     Route: 042
     Dates: start: 20120320
  7. GEMZAR [Suspect]
     Dosage: 1800 MG, UNKNOWN
     Route: 042
     Dates: start: 20120403
  8. GEMZAR [Suspect]
     Dosage: 1800 MG, UNKNOWN
     Route: 042
     Dates: start: 20120417

REACTIONS (2)
  - Malignant neoplasm progression [Fatal]
  - Pulmonary mass [Unknown]
